FAERS Safety Report 8005123-6 (Version None)
Quarter: 2011Q4

REPORT INFORMATION
  Report Type: 
  Country: None (occurrence: None)
  Receive Date: 20111223
  Receipt Date: 20111215
  Transmission Date: 20120403
  Serious: Yes (Hospitalization)
  Sender: FDA-Public Use
  Company Number: PHHY2011US46138

PATIENT
  Sex: Female

DRUGS (1)
  1. EXJADE [Suspect]
     Dosage: 2625 MG, QD
     Route: 048

REACTIONS (4)
  - VOMITING [None]
  - GASTROINTESTINAL DISORDER [None]
  - DIARRHOEA [None]
  - NAUSEA [None]
